FAERS Safety Report 8386243-3 (Version None)
Quarter: 2012Q2

REPORT INFORMATION
  Report Type: 
  Country: None (occurrence: None)
  Receive Date: 20120525
  Receipt Date: 20120522
  Transmission Date: 20120825
  Serious: Yes (Hospitalization, Other)
  Sender: FDA-Public Use
  Company Number: FI-PFIZER INC-2012112786

PATIENT
  Age: 55 Year
  Sex: Female

DRUGS (3)
  1. OXYCODONE HCL [Suspect]
  2. LYRICA [Suspect]
     Dosage: 300 MG, 3X/DAY
  3. LYRICA [Suspect]
     Indication: NEURALGIA
     Dosage: 300 MG, 2X/DAY
     Dates: start: 20100101

REACTIONS (2)
  - WITHDRAWAL SYNDROME [None]
  - DRUG ABUSE [None]
